FAERS Safety Report 16162976 (Version 2)
Quarter: 2019Q2

REPORT INFORMATION
  Report Type: Spontaneous
  Country: US (occurrence: US)
  Receive Date: 20190405
  Receipt Date: 20190603
  Transmission Date: 20190711
  Serious: No
  Sender: FDA-Public Use
  Company Number: US-PFIZER INC-2019147339

PATIENT
  Age: 39 Year
  Sex: Female

DRUGS (3)
  1. PREDNISONE. [Suspect]
     Active Substance: PREDNISONE
     Dosage: 7 MG, 1X/DAY
  2. PREDNISONE. [Suspect]
     Active Substance: PREDNISONE
     Dosage: 7 MG, 1X/DAY
  3. LYRICA [Suspect]
     Active Substance: PREGABALIN
     Dosage: 150 MG, 4X/DAY
     Route: 048

REACTIONS (2)
  - Weight increased [Unknown]
  - Off label use [Unknown]
